FAERS Safety Report 7965700-5 (Version None)
Quarter: 2011Q4

REPORT INFORMATION
  Report Type: 
  Country: None (occurrence: None)
  Receive Date: 20111208
  Receipt Date: 20111202
  Transmission Date: 20120403
  Serious: No
  Sender: FDA-Public Use
  Company Number: US-ELI_LILLY_AND_COMPANY-US201112001576

PATIENT
  Age: 77 Year
  Sex: Female

DRUGS (2)
  1. ADCIRCA [Suspect]
  2. LETAIRIS [Concomitant]
     Dosage: 10 MG, UNK
     Route: 048
     Dates: start: 20110421

REACTIONS (11)
  - BODY TEMPERATURE INCREASED [None]
  - HEADACHE [None]
  - VISION BLURRED [None]
  - DYSKINESIA [None]
  - LETHARGY [None]
  - NAUSEA [None]
  - SOMNOLENCE [None]
  - CONFUSIONAL STATE [None]
  - PAIN IN EXTREMITY [None]
  - DYSARTHRIA [None]
  - FOOT FRACTURE [None]
